FAERS Safety Report 5084012-3 (Version None)
Quarter: 2006Q3

REPORT INFORMATION
  Report Type: 
  Country: None (occurrence: None)
  Receive Date: 20060814
  Receipt Date: 20060808
  Transmission Date: 20061208
  Serious: Yes (Life-Threatening)
  Sender: FDA-Public Use
  Company Number: 2006S1000128

PATIENT
  Age: 9 Day
  Sex: Male

DRUGS (6)
  1. INOMAX [Suspect]
     Indication: LUNG DISORDER
     Dosage: 5 PPM; INH_GAS; INH; CONT INH
     Route: 055
     Dates: start: 20060609, end: 20060625
  2. INOMAX [Suspect]
     Indication: PROPHYLAXIS
     Dosage: 5 PPM; INH_GAS; INH; CONT INH
     Route: 055
     Dates: start: 20060609, end: 20060625
  3. GENTAMICIN [Concomitant]
  4. PHENOBARBITAL TAB [Concomitant]
  5. DOPAMINE HCL [Concomitant]
  6. MEZLOCILLIN (MEZLOCILLIN) [Concomitant]

REACTIONS (5)
  - ACIDOSIS [None]
  - CARDIOMYOPATHY NEONATAL [None]
  - MYOCARDITIS [None]
  - NEONATAL DISORDER [None]
  - SEPSIS NEONATAL [None]
